FAERS Safety Report 7001792-8 (Version None)
Quarter: 2010Q3

REPORT INFORMATION
  Report Type: 
  Country: None (occurrence: None)
  Receive Date: 20100920
  Receipt Date: 20091110
  Transmission Date: 20110219
  Serious: Yes (Other)
  Sender: FDA-Public Use
  Company Number: US-ASTRAZENECA-2006UW11820

PATIENT
  Sex: Female
  Weight: 87.6 kg

DRUGS (7)
  1. SEROQUEL [Suspect]
     Indication: DEPRESSION
     Dosage: 25-300MG
     Route: 048
     Dates: start: 20020402
  2. SEROQUEL [Suspect]
     Indication: ANXIETY
     Dosage: 25-300MG
     Route: 048
     Dates: start: 20020402
  3. PAXIL [Concomitant]
     Dosage: 30-60MG, AT MORNING
     Dates: start: 20021218
  4. RISPERDAL [Concomitant]
     Dosage: 2-4MG
     Dates: start: 20021218
  5. ZESTRIL [Concomitant]
     Dosage: 40-80MG
     Route: 048
     Dates: start: 20020415
  6. HUMULIN R [Concomitant]
     Dosage: 30-50 UNITS
     Dates: start: 19620101
  7. GLUCOPHAGE [Concomitant]
     Dosage: 500-2000MG
     Dates: start: 19960101

REACTIONS (2)
  - DIABETES MELLITUS [None]
  - DIABETIC KETOACIDOSIS [None]
